FAERS Safety Report 8789763 (Version 1)
Quarter: 2012Q4

REPORT INFORMATION
  Report Type: Spontaneous
  Country: US (occurrence: None)
  Receive Date: 20120911
  Receipt Date: 20120911
  Transmission Date: 20130627
  Serious: No
  Sender: FDA-Public Use
  Company Number: None

PATIENT
  Age: 39 Year
  Sex: Male
  Weight: 85.28 kg

DRUGS (2)
  1. COUMADIN [Suspect]
     Indication: PULMONARY EMBOLISM
     Dosage: Dosage is ILLEGIBLE
     Route: 048
     Dates: start: 20120416, end: 20120716
  2. COUMADIN [Suspect]
     Dosage: Dosage is ILLEGIBLE
     Route: 048
     Dates: start: 20120416, end: 20120716

REACTIONS (1)
  - Headache [None]
